FAERS Safety Report 10067961 (Version 2)
Quarter: 2014Q2

REPORT INFORMATION
  Report Type: Spontaneous
  Country: FR (occurrence: FR)
  Receive Date: 20140409
  Receipt Date: 20140424
  Transmission Date: 20141212
  Serious: Yes (Disabling, Other)
  Sender: FDA-Public Use
  Company Number: PHHY2014FR042276

PATIENT
  Age: 43 Year
  Sex: Female

DRUGS (3)
  1. CARBAMAZEPINE [Suspect]
     Indication: FRONTAL LOBE EPILEPSY
  2. VALPROIC ACID [Suspect]
     Indication: FRONTAL LOBE EPILEPSY
  3. PHENOBARBITAL [Suspect]
     Indication: FRONTAL LOBE EPILEPSY

REACTIONS (11)
  - Radius fracture [Unknown]
  - Joint swelling [Unknown]
  - Wrist deformity [Unknown]
  - Vitamin D deficiency [Unknown]
  - Complex regional pain syndrome [Unknown]
  - Hypovitaminosis [Unknown]
  - Osteopenia [Not Recovered/Not Resolved]
  - Pain [Recovered/Resolved]
  - Arthralgia [Unknown]
  - Fall [Unknown]
  - Osteoporosis [Unknown]
